FAERS Safety Report 21023765 (Version 11)
Quarter: 2023Q1

REPORT INFORMATION
  Report Type: Spontaneous
  Country: FR (occurrence: FR)
  Receive Date: 20220629
  Receipt Date: 20230103
  Transmission Date: 20230417
  Serious: Yes (Death, Hospitalization, Other)
  Sender: FDA-Public Use
  Company Number: FR-OTSUKA-2022_033184

PATIENT
  Sex: Male

DRUGS (12)
  1. ARIPIPRAZOLE [Interacting]
     Active Substance: ARIPIPRAZOLE
     Indication: Schizophrenia
     Dosage: 30 MG QD ENHANCEMENT)
     Route: 065
  2. ARIPIPRAZOLE [Interacting]
     Active Substance: ARIPIPRAZOLE
     Dosage: 225MG (DURING THE 3 DAYS BEFORE SUICIDE)
     Route: 065
  3. ARIPIPRAZOLE [Interacting]
     Active Substance: ARIPIPRAZOLE
     Dosage: 15 MILLIGRAM, QD (15 MG, QD)
     Route: 065
  4. RISPERIDONE [Interacting]
     Active Substance: RISPERIDONE
     Indication: Schizophrenia
     Dosage: 6 MG, QD (GRADUALLY INCREASED TO 6MG/DAY)
     Route: 065
  5. RISPERIDONE [Interacting]
     Active Substance: RISPERIDONE
     Dosage: 12 MILLIGRAM, QD
     Route: 065
  6. RISPERIDONE [Interacting]
     Active Substance: RISPERIDONE
     Dosage: 4 MILLIGRAM, QD (4 MG, QD)
     Route: 065
  7. PALIPERIDONE [Concomitant]
     Active Substance: PALIPERIDONE
     Indication: Schizophrenia
     Dosage: 150 MILLIGRAM (150 MG)
     Route: 030
  8. PALIPERIDONE [Concomitant]
     Active Substance: PALIPERIDONE
     Dosage: 75 MG INJECTION
     Route: 030
  9. RISPERIDONE [Concomitant]
     Active Substance: RISPERIDONE
     Indication: Schizophrenia
     Dosage: 12 MILLIGRAM, QD (12 MG PER DAY)
     Route: 065
  10. RISPERIDONE [Concomitant]
     Active Substance: RISPERIDONE
     Dosage: 6 MILLIGRAM (6 MG PER DAY)
     Route: 065
  11. RISPERIDONE [Concomitant]
     Active Substance: RISPERIDONE
     Dosage: GRADUAL DECREASE
     Route: 065
  12. RISPERIDONE [Concomitant]
     Active Substance: RISPERIDONE
     Dosage: 4 MILLIGRAM, QD (4 MG, QD)
     Route: 065

REACTIONS (13)
  - Psychotic disorder [Fatal]
  - Anxiety [Fatal]
  - Symptom recurrence [Fatal]
  - Overdose [Fatal]
  - Completed suicide [Fatal]
  - Intentional product misuse [Fatal]
  - Drug ineffective [Fatal]
  - Persecutory delusion [Recovering/Resolving]
  - Paradoxical drug reaction [Unknown]
  - Drug interaction [Unknown]
  - Delusional perception [Recovered/Resolved]
  - Psychotic symptom [Recovered/Resolved]
  - Therapeutic product effect incomplete [Recovered/Resolved]
